FAERS Safety Report 8334781-1 (Version None)
Quarter: 2012Q2

REPORT INFORMATION
  Report Type: 
  Country: None (occurrence: None)
  Receive Date: 20120503
  Receipt Date: 20120430
  Transmission Date: 20120825
  Serious: Yes (Other)
  Sender: FDA-Public Use
  Company Number: IL-AMGEN-ISRSP2012027433

PATIENT
  Sex: Female

DRUGS (3)
  1. ADRIAMYCIN                         /00330902/ [Concomitant]
     Indication: BREAST CANCER
  2. NEULASTIM [Suspect]
     Indication: PROPHYLAXIS
     Dosage: UNK
  3. CYTOXAN [Concomitant]
     Indication: BREAST CANCER

REACTIONS (2)
  - DRUG INEFFECTIVE [None]
  - NEUTROPENIA [None]
